FAERS Safety Report 24059275 (Version 2)
Quarter: 2024Q3

REPORT INFORMATION
  Report Type: Spontaneous
  Country: US (occurrence: None)
  Receive Date: 20240708
  Receipt Date: 20240724
  Transmission Date: 20241017
  Serious: No
  Sender: ASTRAZENECA
  Company Number: 2024A107235

PATIENT
  Age: 68 Year
  Sex: Female
  Weight: 134.3 kg

DRUGS (2)
  1. BYDUREON BCISE [Suspect]
     Active Substance: EXENATIDE
     Indication: Diabetes mellitus
  2. BYDUREON [Suspect]
     Active Substance: EXENATIDE

REACTIONS (9)
  - Confusional state [Unknown]
  - Incorrect dose administered by device [Unknown]
  - Needle issue [Unknown]
  - Extra dose administered [Unknown]
  - Device delivery system issue [Unknown]
  - Drug dose omission by device [Unknown]
  - Device leakage [Unknown]
  - Drug ineffective [Unknown]
  - Device malfunction [Unknown]
